FAERS Safety Report 6695434-9 (Version None)
Quarter: 2010Q2

REPORT INFORMATION
  Report Type: 
  Country: None (occurrence: None)
  Receive Date: 20100422
  Receipt Date: 20100422
  Transmission Date: 20101027
  Serious: Yes (Other)
  Sender: FDA-Public Use
  Company Number: None

PATIENT
  Sex: Female
  Weight: 156.491 kg

DRUGS (1)
  1. AMITRIPTYLINE HCL [Suspect]
     Indication: SLEEP DISORDER
     Dosage: 60 BEDTIME 10MG
     Dates: start: 20100407

REACTIONS (2)
  - NERVOUSNESS [None]
  - SLEEP DISORDER [None]
